FAERS Safety Report 9665446 (Version 1)
Quarter: 2013Q4

REPORT INFORMATION
  Report Type: Spontaneous
  Country: US (occurrence: None)
  Receive Date: 20131031
  Receipt Date: 20131031
  Transmission Date: 20140711
  Serious: No
  Sender: FDA-Public Use
  Company Number: None

PATIENT
  Age: 59 Year
  Sex: Male
  Weight: 113 kg

DRUGS (4)
  1. NAFCILLIN [Suspect]
     Indication: EXTRADURAL ABSCESS
     Route: 042
     Dates: start: 20110810, end: 20110825
  2. NAFCILLIN [Suspect]
     Indication: STAPHYLOCOCCAL ABSCESS
     Route: 042
     Dates: start: 20110810, end: 20110825
  3. MEROPENEM [Concomitant]
  4. CEFEPIME [Concomitant]
     Dosage: 2 GM INTRAVENOUS?

REACTIONS (2)
  - Haemodialysis [None]
  - Blood creatinine increased [None]
